FAERS Safety Report 4389352-9 (Version None)
Quarter: 2004Q2

REPORT INFORMATION
  Report Type: 
  Country: None (occurrence: None)
  Receive Date: 20040630
  Receipt Date: 20040617
  Transmission Date: 20050107
  Serious: Yes (Hospitalization, Other)
  Sender: FDA-Public Use
  Company Number: 2004220152JP

PATIENT
  Age: 65 Year
  Sex: Female

DRUGS (1)
  1. DELTA-CORTEF [Suspect]
     Indication: RHEUMATOID ARTHRITIS
     Dates: start: 20010101

REACTIONS (4)
  - EPSTEIN-BARR VIRUS ANTIBODY POSITIVE [None]
  - INTERLEUKIN LEVEL INCREASED [None]
  - LABORATORY TEST ABNORMAL [None]
  - PERIPHERAL T-CELL LYMPHOMA UNSPECIFIED [None]
